FAERS Safety Report 23990295 (Version 1)
Quarter: 2024Q2

REPORT INFORMATION
  Report Type: Spontaneous
  Country: CA (occurrence: CA)
  Receive Date: 20240619
  Receipt Date: 20240619
  Transmission Date: 20240716
  Serious: Yes (Hospitalization)
  Sender: FDA-Public Use
  Company Number: CA-FreseniusKabi-FK202409168

PATIENT
  Age: 50 Year
  Sex: Female

DRUGS (4)
  1. MORPHINE [Suspect]
     Active Substance: MORPHINE
     Indication: Pain
     Dosage: DOSAGE FORM: NOT SPECIFIED
     Route: 058
  2. BACLOFEN [Suspect]
     Active Substance: BACLOFEN
     Indication: Musculoskeletal stiffness
     Dosage: FOA: NOT SPECIFIED
     Route: 048
  3. MORPHINE SULFATE [MSIR) [Concomitant]
     Indication: Product used for unknown indication
     Dosage: FOA: TABLETS
  4. XANAX [Concomitant]
     Active Substance: ALPRAZOLAM
     Indication: Product used for unknown indication
     Dosage: FOA: TABLETS

REACTIONS (4)
  - Altered state of consciousness [Recovered/Resolved]
  - Intensive care [Recovered/Resolved]
  - Respiratory failure [Recovered/Resolved]
  - Seizure [Recovered/Resolved]
